FAERS Safety Report 16155343 (Version 2)
Quarter: 2019Q2

REPORT INFORMATION
  Report Type: Spontaneous
  Country: US (occurrence: US)
  Receive Date: 20190403
  Receipt Date: 20190410
  Transmission Date: 20190711
  Serious: No
  Sender: FDA-Public Use
  Company Number: US-AMGEN INC.-USASP2019050078

PATIENT

DRUGS (1)
  1. AIMOVIG [Suspect]
     Active Substance: ERENUMAB-AOOE
     Indication: MIGRAINE
     Dosage: UNK
     Route: 065

REACTIONS (8)
  - Inhibitory drug interaction [Unknown]
  - Flushing [Unknown]
  - Fatigue [Unknown]
  - Bradypnoea [Unknown]
  - Anxiety [Unknown]
  - Heart rate increased [Unknown]
  - Constipation [Unknown]
  - Blood pressure increased [Unknown]
